FAERS Safety Report 4751544-4 (Version None)
Quarter: 2005Q3

REPORT INFORMATION
  Report Type: 
  Country: None (occurrence: None)
  Receive Date: 20050822
  Receipt Date: 20050808
  Transmission Date: 20060218
  Serious: Yes (Death, Hospitalization)
  Sender: FDA-Public Use
  Company Number: 2002121281GB

PATIENT
  Age: 61 Year
  Sex: Male

DRUGS (25)
  1. CELEBREX [Suspect]
     Indication: NEOPLASM PROPHYLAXIS
     Dosage: 800 MG (400 MG, 2 IN 1 D), ORAL
     Route: 048
     Dates: start: 20010627, end: 20020625
  2. ACETYLSALICYLIC ACID SRT [Concomitant]
  3. ISOSORBIDE MONONITRATE [Concomitant]
  4. NITROLINGUAL-SPRAY N (GLYCERYL TRINITRATE) [Concomitant]
  5. VENTOLIN [Concomitant]
  6. ATROVENT [Concomitant]
  7. ZYBAN [Concomitant]
  8. AMOXICILLIN [Concomitant]
  9. PREDNISONE [Concomitant]
  10. SALMETEROL (SALMETEROL) [Concomitant]
  11. DUOVENT (FENOTEROL HYDROBROMIDE, IPRATROPIUM BROMIDE) [Concomitant]
  12. CO-PROXAMOL (DEXTROPROPOXYPHENE HYDROCHLORIDE, PARACETAMOL) [Concomitant]
  13. ACETAMINOPHEN W/ CODEINE [Concomitant]
  14. DICLOFENAC SODIUM [Concomitant]
  15. CLARITHROMYCIN [Concomitant]
  16. CO-AMOXICLAV (AMOXICILLIN TRIHYDRATE, CLAVULANATE POTASSIUM) [Concomitant]
  17. NIQUITIN CQ (NICOTINE) [Concomitant]
  18. SEREVENT [Concomitant]
  19. HYDROCORTISONE [Concomitant]
  20. AUGMENTIN '125' [Concomitant]
  21. COMBIVENT [Concomitant]
  22. DALTEPARIN SODIUM (HEPARIN-FRACTION, SODIUM SALT) [Concomitant]
  23. PARACETAMOL (PARACETAMOL) [Concomitant]
  24. IBUPROFEN [Concomitant]
  25. AUGMENTIN ORAL (AMOXICILLIN TRIHYDRATE, CLAVULANATE POTASSIUM) [Concomitant]

REACTIONS (23)
  - ACUTE LEFT VENTRICULAR FAILURE [None]
  - ANAEMIA [None]
  - ANGINA PECTORIS [None]
  - CARDIAC ARREST [None]
  - CHRONIC OBSTRUCTIVE PULMONARY DISEASE [None]
  - CORONARY ARTERY ATHEROSCLEROSIS [None]
  - CORONARY ARTERY THROMBOSIS [None]
  - DEHYDRATION [None]
  - DUODENAL ULCER [None]
  - DYSPNOEA [None]
  - EROSIVE OESOPHAGITIS [None]
  - FALL [None]
  - GASTRIC OUTLET OBSTRUCTION [None]
  - GASTRIC ULCER [None]
  - GASTRODUODENAL ULCER [None]
  - JAUNDICE [None]
  - PAIN [None]
  - PYLORIC STENOSIS [None]
  - REFLUX OESOPHAGITIS [None]
  - SUDDEN DEATH [None]
  - TREATMENT NONCOMPLIANCE [None]
  - VOMITING [None]
  - WEIGHT DECREASED [None]
